FAERS Safety Report 25872315 (Version 1)
Quarter: 2025Q4

REPORT INFORMATION
  Report Type: Spontaneous
  Country: US (occurrence: US)
  Receive Date: 20251002
  Receipt Date: 20251002
  Transmission Date: 20260118
  Serious: Yes (Hospitalization)
  Sender: AMGEN
  Company Number: US-AMGEN-USASP2025190316

PATIENT
  Age: 33 Year
  Sex: Female

DRUGS (9)
  1. TRASTUZUMAB [Suspect]
     Active Substance: TRASTUZUMAB
     Indication: Invasive ductal breast carcinoma
     Dosage: 550 MILLIGRAM, ONCE
     Route: 040
     Dates: start: 20230209, end: 20230209
  2. TRASTUZUMAB [Suspect]
     Active Substance: TRASTUZUMAB
     Dosage: 410 MILLIGRAM, Q3WK (EVERY 21 DAYS)
     Route: 040
     Dates: start: 20220302, end: 20220526
  3. TRASTUZUMAB [Suspect]
     Active Substance: TRASTUZUMAB
     Dosage: 420 MILLIGRAM, Q3WK (EVERY 21 DAYS)
     Route: 040
     Dates: start: 20220718, end: 20230213
  4. DOCETAXEL [Suspect]
     Active Substance: DOCETAXEL
     Indication: Invasive ductal breast carcinoma
     Dosage: 135 MILLIGRAM, ONCE
     Route: 040
     Dates: start: 20230209, end: 20230209
  5. DOCETAXEL [Suspect]
     Active Substance: DOCETAXEL
     Dosage: 135 MILLIGRAM, Q3WK
     Route: 040
     Dates: start: 20220302, end: 20220526
  6. CARBOPLATIN [Suspect]
     Active Substance: CARBOPLATIN
     Indication: Invasive ductal breast carcinoma
     Dosage: 500 MILLIGRAM, ONCE
     Route: 040
     Dates: start: 20230209, end: 20230209
  7. CARBOPLATIN [Suspect]
     Active Substance: CARBOPLATIN
     Dosage: 500 MILLIGRAM, Q3WK
     Route: 040
     Dates: start: 20220302, end: 20220526
  8. PERTUZUMAB [Suspect]
     Active Substance: PERTUZUMAB
     Indication: Invasive ductal breast carcinoma
     Dosage: 840 MILLIGRAM, ONCE
     Route: 040
     Dates: start: 20230209, end: 20230209
  9. PERTUZUMAB [Suspect]
     Active Substance: PERTUZUMAB
     Dosage: 420 MILLIGRAM, Q3WK
     Route: 040
     Dates: start: 20220302, end: 20220526

REACTIONS (4)
  - Arteriosclerosis coronary artery [Recovering/Resolving]
  - Coronary artery stenosis [Unknown]
  - Ventricular hypokinesia [Unknown]
  - Off label use [Unknown]

NARRATIVE: CASE EVENT DATE: 20230209
